FAERS Safety Report 9290156 (Version 1)
Quarter: 2013Q2

REPORT INFORMATION
  Report Type: Spontaneous
  Country: US (occurrence: US)
  Receive Date: 20130515
  Receipt Date: 20130515
  Transmission Date: 20140414
  Serious: No
  Sender: FDA-Public Use
  Company Number: US-OPTIMER PHARMACEUTICALS, INC.-20120051

PATIENT
  Age: 68 Year
  Sex: Female
  Weight: 63.39 kg

DRUGS (3)
  1. DIFICID [Suspect]
     Indication: CLOSTRIDIAL INFECTION
     Dosage: 200 MG, BID
     Route: 048
     Dates: start: 20111227, end: 20120105
  2. BACTRIM [Concomitant]
     Indication: EYE INFECTION
     Dosage: UNK, BID
     Route: 048
     Dates: start: 20120327, end: 20120403
  3. SYNTHROID [Concomitant]
     Dosage: UNK
     Route: 048
     Dates: start: 2011

REACTIONS (8)
  - Clostridium difficile infection [Unknown]
  - Disease recurrence [Unknown]
  - Chills [Unknown]
  - Abdominal discomfort [Unknown]
  - Diarrhoea [Unknown]
  - Abnormal faeces [Unknown]
  - Abdominal pain [Unknown]
  - Eye infection [Unknown]
